FAERS Safety Report 6765894-3 (Version None)
Quarter: 2010Q2

REPORT INFORMATION
  Report Type: 
  Country: None (occurrence: None)
  Receive Date: 20100611
  Receipt Date: 20100602
  Transmission Date: 20101027
  Serious: Yes (Hospitalization)
  Sender: FDA-Public Use
  Company Number: US-JNJFOC-20100602339

PATIENT
  Sex: Female
  Weight: 35.1 kg

DRUGS (8)
  1. REMICADE [Suspect]
     Indication: CROHN'S DISEASE
     Route: 042
  2. HUMIRA [Concomitant]
     Indication: CROHN'S DISEASE
  3. METHOTREXATE [Concomitant]
  4. IRON [Concomitant]
  5. GROWTH HORMONE [Concomitant]
  6. ANTIBIOTICS [Concomitant]
     Indication: INFLAMMATORY BOWEL DISEASE
  7. FOLIC ACID [Concomitant]
  8. PREVACID [Concomitant]

REACTIONS (1)
  - CROHN'S DISEASE [None]
